FAERS Safety Report 8785408 (Version 1)
Quarter: 2012Q4

REPORT INFORMATION
  Report Type: 
  Country: FR (occurrence: FR)
  Receive Date: 20120914
  Receipt Date: 20120914
  Transmission Date: 20130627
  Serious: Yes (Hospitalization)
  Sender: FDA-Public Use
  Company Number: FR-009507513-1209FRA004716

PATIENT

DRUGS (10)
  1. JANUMET [Suspect]
     Indication: TYPE 2 DIABETES MELLITUS
     Dosage: 1 DF, bid
     Route: 048
     Dates: start: 20120731, end: 20120824
  2. ALLOPURINOL [Suspect]
     Indication: GOUT
     Dosage: 200 mg, qd
     Route: 048
     Dates: start: 20120731, end: 20120824
  3. DIAMICRON [Suspect]
     Indication: TYPE 2 DIABETES MELLITUS
     Dosage: 30 mg, UNK
     Route: 048
     Dates: end: 20120730
  4. DIAMICRON [Suspect]
     Dosage: 60 mg, UNK
     Route: 048
     Dates: start: 20120731, end: 20120824
  5. INEGY [Concomitant]
     Dosage: 1 DF, qd
     Route: 048
     Dates: end: 20120824
  6. LASILIX [Concomitant]
     Dosage: 375 mg, qd
     Dates: start: 20120522, end: 20120804
  7. APROVEL [Concomitant]
     Dosage: 300 mg, qd
     Route: 048
     Dates: start: 20120418, end: 20120824
  8. CELECTOL [Concomitant]
     Dosage: 200 mg, bid
  9. PRIMPERAN [Concomitant]
     Dosage: UNK
     Dates: start: 20120813, end: 20120815
  10. KAYEXALATE [Concomitant]

REACTIONS (4)
  - Hepatitis [Recovering/Resolving]
  - Rash maculo-papular [Not Recovered/Not Resolved]
  - Pyrexia [Not Recovered/Not Resolved]
  - Renal failure [Recovering/Resolving]
